FAERS Safety Report 21209024 (Version 1)
Quarter: 2022Q3

REPORT INFORMATION
  Report Type: Spontaneous
  Country: US (occurrence: US)
  Receive Date: 20220812
  Receipt Date: 20220812
  Transmission Date: 20221026
  Serious: No
  Sender: FDA-Public Use
  Company Number: US-009507513-2207USA008793

PATIENT
  Sex: Male

DRUGS (1)
  1. STEGLATRO [Suspect]
     Active Substance: ERTUGLIFLOZIN PIDOLATE
     Indication: Blood glucose increased
     Dosage: 5 MILLIGRAM
     Route: 048

REACTIONS (3)
  - Drug ineffective [Recovering/Resolving]
  - Ill-defined disorder [Recovering/Resolving]
  - Product use issue [Unknown]
